FAERS Safety Report 16735726 (Version 5)
Quarter: 2023Q4

REPORT INFORMATION
  Report Type: Spontaneous
  Country: US (occurrence: US)
  Receive Date: 20190823
  Receipt Date: 20231219
  Transmission Date: 20240110
  Serious: Yes (Death, Hospitalization)
  Sender: FDA-Public Use
  Company Number: US-PFIZER INC-2019362161

PATIENT
  Age: 76 Year
  Sex: Female

DRUGS (19)
  1. XELJANZ [Suspect]
     Active Substance: TOFACITINIB CITRATE
     Indication: Rheumatoid arthritis
     Dosage: 5 MG, 2X/DAY
     Route: 048
     Dates: start: 20150317, end: 20230927
  2. ACETAMINOPHEN\HYDROCODONE [Concomitant]
     Active Substance: ACETAMINOPHEN\HYDROCODONE
     Dosage: UNK
  3. LINZESS [Concomitant]
     Active Substance: LINACLOTIDE
     Dosage: UNK
  4. TUMS [Concomitant]
     Active Substance: CALCIUM CARBONATE
     Dosage: UNK
  5. DICLOFENAC SODIUM [Concomitant]
     Active Substance: DICLOFENAC\DICLOFENAC SODIUM
     Dosage: UNK
  6. FOLIC ACID [Concomitant]
     Active Substance: FOLIC ACID
     Dosage: UNK
  7. MELOXICAM [Concomitant]
     Active Substance: MELOXICAM
     Dosage: UNK
  8. AMOXICILLIN [Concomitant]
     Active Substance: AMOXICILLIN
     Dosage: UNK
  9. OXYBUTYNIN CHLORIDE [Concomitant]
     Active Substance: OXYBUTYNIN CHLORIDE
     Dosage: UNK
  10. CRANBERRY [Concomitant]
     Active Substance: CRANBERRY
     Dosage: UNK
  11. DULOXETINE [Concomitant]
     Active Substance: DULOXETINE
     Dosage: UNK
  12. FAMOTIDINE [Concomitant]
     Active Substance: FAMOTIDINE
     Dosage: UNK
  13. METHOTREXATE [Concomitant]
     Active Substance: METHOTREXATE
     Dosage: UNK
  14. NEURONTIN [Concomitant]
     Active Substance: GABAPENTIN
     Dosage: UNK
  15. NORCO [Concomitant]
     Active Substance: ACETAMINOPHEN\HYDROCODONE BITARTRATE
     Dosage: UNK
  16. PROBIOTIC ACIDOPHILUS [LACTOBACILLUS ACIDOPHILUS] [Concomitant]
     Dosage: UNK
  17. RECLAST [Concomitant]
     Active Substance: ZOLEDRONIC ACID
     Dosage: UNK
  18. STOOL SOFTENER (DOCUSATE) [Concomitant]
     Active Substance: DOCUSATE
     Dosage: UNK
  19. VITAMIN D3 [Concomitant]
     Active Substance: CHOLECALCIFEROL
     Dosage: UNK

REACTIONS (5)
  - Acute myeloid leukaemia [Fatal]
  - Malaise [Fatal]
  - Pancreatitis [Recovering/Resolving]
  - Constipation [Recovering/Resolving]
  - Bone pain [Unknown]

NARRATIVE: CASE EVENT DATE: 20230927
